FAERS Safety Report 9409864 (Version 1)
Quarter: 2013Q3

REPORT INFORMATION
  Report Type: Spontaneous
  Country: US (occurrence: US)
  Receive Date: 20130719
  Receipt Date: 20130719
  Transmission Date: 20140515
  Serious: Yes (Death)
  Sender: FDA-Public Use
  Company Number: US-PFIZER INC-2013211442

PATIENT
  Age: 55 Year
  Sex: Male

DRUGS (1)
  1. RAPAMUNE [Suspect]
     Indication: PANCREAS TRANSPLANT
     Dosage: 2 MG, 1X/DAY
     Dates: start: 20100819

REACTIONS (2)
  - Renal failure [Fatal]
  - Off label use [Fatal]
